FAERS Safety Report 16161190 (Version 1)
Quarter: 2019Q2

REPORT INFORMATION
  Report Type: Report from Study
  Country: PK (occurrence: PK)
  Receive Date: 20190405
  Receipt Date: 20190405
  Transmission Date: 20190711
  Serious: Yes (Death)
  Sender: FDA-Public Use
  Company Number: PK-ROCHE-2291385

PATIENT
  Age: 62 Year
  Sex: Male

DRUGS (1)
  1. RISTOVA [Suspect]
     Active Substance: RITUXIMAB
     Indication: DIFFUSE LARGE B-CELL LYMPHOMA
     Route: 065
     Dates: start: 20190222

REACTIONS (3)
  - Asthenia [Fatal]
  - Diarrhoea [Fatal]
  - Dehydration [Fatal]

NARRATIVE: CASE EVENT DATE: 20190315
